FAERS Safety Report 17755995 (Version 1)
Quarter: 2020Q2

REPORT INFORMATION
  Report Type: Spontaneous
  Country: US (occurrence: US)
  Receive Date: 20200507
  Receipt Date: 20200507
  Transmission Date: 20200714
  Serious: No
  Sender: FDA-Public Use
  Company Number: US-VERTEX PHARMACEUTICALS-2020-009916

PATIENT
  Sex: Female
  Weight: 74 kg

DRUGS (2)
  1. CAYSTON [Concomitant]
     Active Substance: AZTREONAM
  2. TRIKAFTA [Suspect]
     Active Substance: ELEXACAFTOR\IVACAFTOR\TEZACAFTOR
     Indication: CYSTIC FIBROSIS
     Dosage: 2 ORANGE TAB AM;1BLUE TAB PM ,150MG IVACAFTOR
     Route: 048

REACTIONS (5)
  - Rash erythematous [Unknown]
  - Headache [Unknown]
  - Peripheral swelling [Unknown]
  - Pneumonia pseudomonal [Unknown]
  - Aspergillus infection [Not Recovered/Not Resolved]

NARRATIVE: CASE EVENT DATE: 2020
